FAERS Safety Report 8579799-9 (Version None)
Quarter: 2012Q3

REPORT INFORMATION
  Report Type: 
  Country: None (occurrence: None)
  Receive Date: 20120808
  Receipt Date: 20120803
  Transmission Date: 20120928
  Serious: Yes (Other)
  Sender: FDA-Public Use
  Company Number: TR-ROXANE LABORATORIES, INC.-2012-RO-01637RO

PATIENT
  Age: 63 Year
  Sex: Male

DRUGS (3)
  1. RAMIPRIL PLUS HYDROCHLOROTIAZIDE [Suspect]
     Indication: HYPERTENSION
     Dosage: 10 MG
  2. ASPIRIN [Suspect]
     Indication: ISCHAEMIC STROKE
     Dosage: 300 MG
  3. AMLODIPINE [Suspect]
     Indication: HYPERTENSION
     Dosage: 10 MG

REACTIONS (1)
  - DELIRIUM [None]
